FAERS Safety Report 6080169-6 (Version None)
Quarter: 2009Q1

REPORT INFORMATION
  Report Type: 
  Country: None (occurrence: None)
  Receive Date: 20090217
  Receipt Date: 20090213
  Transmission Date: 20090719
  Serious: Yes (Other)
  Sender: FDA-Public Use
  Company Number: NL-ASTRAZENECA-2009AC00566

PATIENT
  Age: 944 Month
  Sex: Female

DRUGS (7)
  1. CRESTOR [Suspect]
     Route: 048
     Dates: start: 20070901
  2. OXAZEPAM [Concomitant]
     Route: 048
  3. EZETROL [Concomitant]
     Route: 048
  4. AMLODIPINE [Concomitant]
     Route: 048
  5. ACETYLSALICYLZUUR CARDIO [Concomitant]
     Route: 048
  6. BISOPROLOLFUMARAAT [Concomitant]
     Route: 048
  7. PERINDOPRIL TERT-BUTYLAMINE [Concomitant]
     Route: 048

REACTIONS (1)
  - DIABETES MELLITUS [None]
